FAERS Safety Report 9679963 (Version 1)
Quarter: 2013Q4

REPORT INFORMATION
  Report Type: Report from Study
  Country: US (occurrence: US)
  Receive Date: 20131110
  Receipt Date: 20131110
  Transmission Date: 20140711
  Serious: Yes (Other)
  Sender: FDA-Public Use
  Company Number: PHEH2013US023269

PATIENT
  Sex: Female

DRUGS (14)
  1. GILENYA [Suspect]
     Indication: MULTIPLE SCLEROSIS
     Dosage: 0.5 MG, QD
     Route: 048
     Dates: start: 2011
  2. TOVIAZ [Concomitant]
  3. AMBIEN [Concomitant]
  4. XANAX [Concomitant]
  5. BACLOFEN [Concomitant]
  6. BUTORPHANOL TARTRATE [Concomitant]
  7. DAYPRO [Concomitant]
  8. EFEXOR XR [Concomitant]
  9. FLUOXETINE HCL [Concomitant]
  10. HYDROCODONE BITARTRATE AND ACETAMINOPHEN [Concomitant]
  11. IBUPROFEN [Concomitant]
  12. OMEPRAZOLE [Concomitant]
  13. PHENERGAN [Concomitant]
  14. TOPIRAMATE [Concomitant]

REACTIONS (3)
  - Hallucination [Unknown]
  - Palpitations [Unknown]
  - Headache [Unknown]
